FAERS Safety Report 11184009 (Version 2)
Quarter: 2015Q3

REPORT INFORMATION
  Report Type: Report from Study
  Country: JP (occurrence: None)
  Receive Date: 20150610
  Receipt Date: 20150714
  Transmission Date: 20151125
  Serious: Yes (Death, Life-Threatening, Hospitalization, Disabling, Other)
  Sender: FDA-Public Use
  Company Number: 2014FE02014

PATIENT
  Age: 86 Year
  Sex: Male
  Weight: 68 kg

DRUGS (7)
  1. ODYNE (FLUTAMIDE) [Concomitant]
  2. LEUPLIN [Concomitant]
     Active Substance: LEUPROLIDE ACETATE
  3. DAONIL [Suspect]
     Active Substance: GLYBURIDE
     Indication: DIABETES MELLITUS
     Route: 048
     Dates: end: 20140320
  4. DEGARELIX (DEGARELIX) POWDER AND SOLVENT FOR SOLUTION FOR INJECTION [Suspect]
     Active Substance: DEGARELIX
     Indication: PROSTATE CANCER METASTATIC
     Route: 058
     Dates: start: 20130502, end: 20130502
  5. HEPARIN [Concomitant]
     Active Substance: HEPARIN SODIUM
  6. CASODEX [Concomitant]
     Active Substance: BICALUTAMIDE
  7. LASIX [Concomitant]
     Active Substance: FUROSEMIDE

REACTIONS (9)
  - Oesophageal carcinoma [None]
  - Loss of consciousness [None]
  - Hypoglycaemia [None]
  - Cerebral infarction [None]
  - Device related infection [None]
  - Embolic stroke [None]
  - Cardiac failure congestive [None]
  - Septic shock [None]
  - Pneumonia [None]

NARRATIVE: CASE EVENT DATE: 20140319
